FAERS Safety Report 10022632 (Version 2)
Quarter: 2014Q1

REPORT INFORMATION
  Report Type: Spontaneous
  Country: DE (occurrence: DE)
  Receive Date: 20140319
  Receipt Date: 20140319
  Transmission Date: 20141002
  Serious: Yes (Hospitalization, Other)
  Sender: FDA-Public Use
  Company Number: DE-B.I. PHARMACEUTICALS,INC./RIDGEFIELD-2014-BI-08449DE

PATIENT
  Sex: Female
  Weight: 63.5 kg

DRUGS (8)
  1. PRADAXA [Suspect]
     Indication: PRODUCT USED FOR UNKNOWN INDICATION
     Dosage: 220 MG
     Route: 065
  2. DELIX 5MG/12,5 PLUS [Concomitant]
     Dosage: 1 ANZ
     Route: 065
  3. AMLODIPIN [Concomitant]
     Dosage: 5 MG
     Route: 065
  4. TOREM [Concomitant]
     Dosage: 10 MG
     Route: 065
  5. DILATREND 12,5 [Concomitant]
     Dosage: 2 ANZ
     Route: 065
  6. METFORMIN [Concomitant]
     Dosage: 1000 MG
     Route: 065
  7. GLIMEPERID 1MG [Concomitant]
     Dosage: 1 ANZ
     Route: 065
  8. DIGIMERCK [Concomitant]
     Dosage: 0.7 MG
     Route: 065

REACTIONS (14)
  - Haemorrhage [Not Recovered/Not Resolved]
  - Lower gastrointestinal haemorrhage [Unknown]
  - Haemoglobin decreased [Unknown]
  - Haematochezia [Not Recovered/Not Resolved]
  - Gastrointestinal submucosal tumour [Unknown]
  - Pancreatic cyst [Unknown]
  - Dyspnoea [Unknown]
  - General physical health deterioration [Unknown]
  - Hiatus hernia [Unknown]
  - Hypotension [Unknown]
  - Gastrooesophageal reflux disease [Unknown]
  - Cholelithiasis [Unknown]
  - Breast mass [Unknown]
  - Mitral valve incompetence [Unknown]
